FAERS Safety Report 20565394 (Version 3)
Quarter: 2022Q2

REPORT INFORMATION
  Report Type: Spontaneous
  Country: JP (occurrence: JP)
  Receive Date: 20220308
  Receipt Date: 20220401
  Transmission Date: 20220720
  Serious: Yes (Other)
  Sender: FDA-Public Use
  Company Number: JP-IPSEN Group, Research and Development-2022-04098

PATIENT
  Age: 75 Year
  Sex: Male

DRUGS (5)
  1. LANREOTIDE ACETATE [Suspect]
     Active Substance: LANREOTIDE ACETATE
     Indication: Pancreatic neuroendocrine tumour
     Route: 058
     Dates: start: 202002, end: 202009
  2. LANREOTIDE ACETATE [Suspect]
     Active Substance: LANREOTIDE ACETATE
     Route: 058
     Dates: start: 202010
  3. AFINITOR [Suspect]
     Active Substance: EVEROLIMUS
     Indication: Pancreatic neuroendocrine tumour
     Dates: start: 202005, end: 202009
  4. AFINITOR [Suspect]
     Active Substance: EVEROLIMUS
     Dates: start: 202012
  5. URSO [Concomitant]
     Active Substance: URSODIOL

REACTIONS (2)
  - Blood insulin decreased [Unknown]
  - Hyperglycaemia [Unknown]

NARRATIVE: CASE EVENT DATE: 20201001
